FAERS Safety Report 8512300-4 (Version None)
Quarter: 2012Q3

REPORT INFORMATION
  Report Type: 
  Country: None (occurrence: None)
  Receive Date: 20120716
  Receipt Date: 20120705
  Transmission Date: 20120928
  Serious: Yes (Death, Hospitalization)
  Sender: FDA-Public Use
  Company Number: US-ACTELION-A-NJ2010-40177

PATIENT

DRUGS (6)
  1. TRACLEER [Suspect]
     Indication: PULMONARY ARTERIAL HYPERTENSION
     Dosage: UNK
     Route: 048
     Dates: start: 20110101
  2. TRACLEER [Suspect]
     Dosage: UNK
     Route: 048
     Dates: start: 20090501, end: 20110301
  3. OXYGEN [Concomitant]
  4. PLAVIX [Concomitant]
  5. ASPIRIN [Concomitant]
  6. SILDENAFIL [Concomitant]

REACTIONS (24)
  - NAUSEA [None]
  - RASH MACULAR [None]
  - FLUID RETENTION [None]
  - ASTHENIA [None]
  - DECREASED APPETITE [None]
  - DIZZINESS [None]
  - OEDEMA [None]
  - VOMITING [None]
  - FATIGUE [None]
  - NEUROGENIC BLADDER [None]
  - CARDIAC FAILURE CONGESTIVE [None]
  - LACERATION [None]
  - LOCALISED INFECTION [None]
  - SYNCOPE [None]
  - FALL [None]
  - DEATH [None]
  - BLOOD PRESSURE DECREASED [None]
  - BALANCE DISORDER [None]
  - URINE COLOUR ABNORMAL [None]
  - MALAISE [None]
  - OEDEMA PERIPHERAL [None]
  - DYSPNOEA [None]
  - PRURITUS [None]
  - MUSCULOSKELETAL CHEST PAIN [None]
